FAERS Safety Report 24455181 (Version 2)
Quarter: 2024Q4

REPORT INFORMATION
  Report Type: Report from Study
  Country: JP (occurrence: JP)
  Receive Date: 20241017
  Receipt Date: 20241018
  Transmission Date: 20250114
  Serious: No
  Sender: ROCHE
  Company Number: JP-ROCHE-3486444

PATIENT
  Age: 65 Year
  Sex: Female
  Weight: 51.0 kg

DRUGS (4)
  1. RITUXIMAB [Suspect]
     Active Substance: RITUXIMAB
     Indication: Systemic scleroderma
     Dosage: SUBSEQUENT THERAPY WAS ON 13/AUG/2022, 19/AUG/2022, 26/AUG/2022, 02/SEP/2022, 07/MAR/2023 AND 17/MAR
     Route: 041
     Dates: start: 20220813, end: 20220813
  2. PREDNISOLONE [Concomitant]
     Active Substance: PREDNISOLONE
     Route: 048
  3. METHOTREXATE [Concomitant]
     Active Substance: METHOTREXATE
  4. IGURATIMOD [Concomitant]
     Active Substance: IGURATIMOD

REACTIONS (1)
  - Rheumatoid arthritis [Recovering/Resolving]

NARRATIVE: CASE EVENT DATE: 20230418
